FAERS Safety Report 9315849 (Version 4)
Quarter: 2013Q3

REPORT INFORMATION
  Report Type: Spontaneous
  Country: US (occurrence: US)
  Receive Date: 20130529
  Receipt Date: 20130819
  Transmission Date: 20140515
  Serious: Yes (Hospitalization, Other)
  Sender: FDA-Public Use
  Company Number: US-ROCHE-661423

PATIENT
  Age: 14 Year
  Sex: Female
  Weight: 68 kg

DRUGS (1)
  1. ACCUTANE [Suspect]
     Indication: ACNE
     Route: 048
     Dates: start: 20000228, end: 20000612

REACTIONS (9)
  - Colitis ulcerative [Unknown]
  - Lower gastrointestinal haemorrhage [Unknown]
  - Anaemia [Unknown]
  - Inflammatory bowel disease [Unknown]
  - Depression [Unknown]
  - Blood triglycerides increased [Unknown]
  - Blood cholesterol increased [Unknown]
  - Dry eye [Unknown]
  - Chapped lips [Unknown]
